FAERS Safety Report 6451807-0 (Version None)
Quarter: 2009Q4

REPORT INFORMATION
  Report Type: 
  Country: None (occurrence: None)
  Receive Date: 20091123
  Receipt Date: 20091113
  Transmission Date: 20100525
  Serious: Yes (Hospitalization)
  Sender: FDA-Public Use
  Company Number: BE-ABBOTT-09P-013-0608612-00

PATIENT
  Sex: Male

DRUGS (1)
  1. LUCRIN TRIDEPOT [Suspect]
     Indication: PROSTATE CANCER
     Dates: start: 20071101

REACTIONS (1)
  - ACCIDENT [None]
